FAERS Safety Report 6099816-8 (Version None)
Quarter: 2009Q1

REPORT INFORMATION
  Report Type: 
  Country: None (occurrence: None)
  Receive Date: 20090303
  Receipt Date: 20090220
  Transmission Date: 20090719
  Serious: Yes (Other)
  Sender: FDA-Public Use
  Company Number: PHHY2008DE27896

PATIENT
  Sex: Female

DRUGS (1)
  1. RASILEZ [Suspect]

REACTIONS (1)
  - CORTISOL FREE URINE INCREASED [None]
